FAERS Safety Report 13377665 (Version 3)
Quarter: 2017Q2

REPORT INFORMATION
  Report Type: Spontaneous
  Country: US (occurrence: US)
  Receive Date: 20170328
  Receipt Date: 20170530
  Transmission Date: 20170830
  Serious: Yes (Other)
  Sender: FDA-Public Use
  Company Number: US-AMGEN-USASP2017045261

PATIENT
  Age: 70 Year
  Sex: Female

DRUGS (6)
  1. CELEBREX [Concomitant]
     Active Substance: CELECOXIB
     Dosage: 100 MG, BID
  2. MULTI VITAMIN [Concomitant]
     Active Substance: VITAMINS
     Dosage: UNK
  3. CALCIUM CITRATE + D [Concomitant]
  4. PROLIA [Suspect]
     Active Substance: DENOSUMAB
     Indication: OSTEOPOROSIS
     Dosage: UNK
     Route: 065
  5. CENTRUM SILVER [Concomitant]
     Active Substance: MINERALS\VITAMINS
     Dosage: UNK
  6. VITAMIN D3 [Concomitant]
     Active Substance: CHOLECALCIFEROL
     Dosage: UNK

REACTIONS (8)
  - Ill-defined disorder [Unknown]
  - Meniscus injury [Unknown]
  - Tooth avulsion [Unknown]
  - Injury associated with device [Unknown]
  - Autoimmune disorder [Unknown]
  - Jaw disorder [Unknown]
  - Osteoporosis [Unknown]
  - Sleep disorder [Unknown]

NARRATIVE: CASE EVENT DATE: 2015
